FAERS Safety Report 10700799 (Version 1)
Quarter: 2015Q1

REPORT INFORMATION
  Report Type: Report from Study
  Country: US (occurrence: US)
  Receive Date: 20150109
  Receipt Date: 20150109
  Transmission Date: 20150721
  Serious: Yes (Hospitalization)
  Sender: FDA-Public Use
  Company Number: US-ACTELION-A-US2014-110546

PATIENT
  Age: 81 Year
  Sex: Male

DRUGS (12)
  1. OPSUMIT [Suspect]
     Active Substance: MACITENTAN
     Indication: PULMONARY ARTERIAL HYPERTENSION
     Dosage: 10 MG, QD
     Route: 048
     Dates: start: 201403
  2. ADCIRCA [Concomitant]
     Active Substance: TADALAFIL
  3. ATENOLOL. [Concomitant]
     Active Substance: ATENOLOL
  4. IRON [Concomitant]
     Active Substance: IRON
  5. OMEPRAZOLE. [Concomitant]
     Active Substance: OMEPRAZOLE
  6. SPIRIVA [Concomitant]
     Active Substance: TIOTROPIUM BROMIDE MONOHYDRATE
  7. LIPITOR [Concomitant]
     Active Substance: ATORVASTATIN CALCIUM
  8. POTASSIUM [Concomitant]
     Active Substance: POTASSIUM
  9. VELETRI [Suspect]
     Active Substance: EPOPROSTENOL
     Indication: PULMONARY ARTERIAL HYPERTENSION
     Dosage: 20 NG/KG, PER MIN
     Route: 042
     Dates: start: 201403
  10. FAMOTIDINE. [Concomitant]
     Active Substance: FAMOTIDINE
  11. FUROSEMIDE. [Concomitant]
     Active Substance: FUROSEMIDE
  12. GELUSIL [Concomitant]
     Active Substance: ALUMINUM HYDROXIDE\DIMETHICONE\MAGNESIUM HYDROXIDE\SILICON DIOXIDE

REACTIONS (6)
  - Pyrexia [Recovering/Resolving]
  - Oxygen saturation decreased [Unknown]
  - Anaemia [Unknown]
  - Malaise [Recovering/Resolving]
  - Device related infection [Recovering/Resolving]
  - Feeling cold [Recovering/Resolving]

NARRATIVE: CASE EVENT DATE: 20141212
